FAERS Safety Report 21823051 (Version 2)
Quarter: 2023Q1

REPORT INFORMATION
  Report Type: Spontaneous
  Country: FR (occurrence: FR)
  Receive Date: 20230105
  Receipt Date: 20230113
  Transmission Date: 20230417
  Serious: Yes (Hospitalization)
  Sender: FDA-Public Use
  Company Number: None

PATIENT
  Age: 88 Year
  Sex: Male

DRUGS (9)
  1. TOVIAZ [Suspect]
     Active Substance: FESOTERODINE FUMARATE
     Indication: Hypertonic bladder
     Dosage: 4 MG, 1X/DAY
     Route: 048
     Dates: start: 20220716
  2. ENTRESTO [Concomitant]
     Active Substance: SACUBITRIL\VALSARTAN
  3. FUROSEMIDE [Concomitant]
     Active Substance: FUROSEMIDE
  4. OMEPRAZOLE [Concomitant]
     Active Substance: OMEPRAZOLE
  5. METFORMIN HYDROCHLORIDE [Concomitant]
     Active Substance: METFORMIN HYDROCHLORIDE
  6. CORDARONE [Concomitant]
     Active Substance: AMIODARONE HYDROCHLORIDE
  7. ASCORBIC ACID\FERROUS SULFATE [Concomitant]
     Active Substance: ASCORBIC ACID\FERROUS SULFATE
  8. DOLIPRANE [Concomitant]
     Active Substance: ACETAMINOPHEN
  9. LEVOTHYROXINE [Concomitant]
     Active Substance: LEVOTHYROXINE

REACTIONS (2)
  - Hallucination [Recovered/Resolved]
  - Confusional state [Recovered/Resolved with Sequelae]

NARRATIVE: CASE EVENT DATE: 20220701
